FAERS Safety Report 7713109-1 (Version None)
Quarter: 2011Q3

REPORT INFORMATION
  Report Type: 
  Country: None (occurrence: None)
  Receive Date: 20110826
  Receipt Date: 20110812
  Transmission Date: 20111222
  Serious: Yes (Hospitalization)
  Sender: FDA-Public Use
  Company Number: PHHO2011US01029

PATIENT
  Sex: Male
  Weight: 98.5 kg

DRUGS (5)
  1. ZORTRESS [Suspect]
     Dosage: 0.75 MG, BID
     Route: 048
     Dates: start: 20110727
  2. PREDNISOLONE [Concomitant]
     Indication: IMMUNOSUPPRESSION
  3. ZORTRESS [Suspect]
     Dosage: 0.75 MG, BID
     Route: 048
     Dates: start: 20101209
  4. NEORAL [Concomitant]
     Indication: IMMUNOSUPPRESSION
  5. ZORTRESS [Suspect]
     Indication: HEART TRANSPLANT
     Dosage: 0.5 MG, BID
     Route: 048
     Dates: start: 20040729

REACTIONS (7)
  - ANAEMIA [None]
  - GASTROINTESTINAL HAEMORRHAGE [None]
  - RENAL FAILURE ACUTE [None]
  - AZOTAEMIA [None]
  - CONCOMITANT DISEASE PROGRESSION [None]
  - DYSGEUSIA [None]
  - ARTERIOVENOUS MALFORMATION [None]
